FAERS Safety Report 17175650 (Version 1)
Quarter: 2019Q4

REPORT INFORMATION
  Report Type: Spontaneous
  Country: PL (occurrence: PL)
  Receive Date: 20191219
  Receipt Date: 20191219
  Transmission Date: 20200122
  Serious: Yes (Other)
  Sender: FDA-Public Use
  Company Number: PL-SUN PHARMACEUTICAL INDUSTRIES LTD-2019R1-230930

PATIENT
  Age: 37 Year

DRUGS (2)
  1. CAPECITABINE. [Suspect]
     Active Substance: CAPECITABINE
     Indication: MIXED ADENONEUROENDOCRINE CARCINOMA
     Dosage: 3RD CYCLE
     Route: 065
  2. CISPLATIN. [Suspect]
     Active Substance: CISPLATIN
     Indication: MIXED ADENONEUROENDOCRINE CARCINOMA
     Dosage: 3RD CYCLE
     Route: 065

REACTIONS (1)
  - Disease progression [Unknown]
